FAERS Safety Report 6258122-9 (Version None)
Quarter: 2009Q3

REPORT INFORMATION
  Report Type: 
  Country: None (occurrence: None)
  Receive Date: 20090702
  Receipt Date: 20090702
  Transmission Date: 20100115
  Serious: Yes (Death)
  Sender: FDA-Public Use
  Company Number: None

PATIENT
  Sex: Male

DRUGS (9)
  1. REVLIMID [Suspect]
     Indication: MYELODYSPLASTIC SYNDROME
     Dosage: 5MG DAILY ORALLY
     Route: 048
     Dates: start: 20090401, end: 20090428
  2. MORPHINE SULFATE [Concomitant]
  3. FUROSEMIDE [Concomitant]
  4. TEMAZEPAM [Concomitant]
  5. SENNA [Concomitant]
  6. OMEPRAZOLE [Concomitant]
  7. FERROUS GLUCONATE [Concomitant]
  8. LORAZEPAM [Concomitant]
  9. ASPIRIN [Concomitant]

REACTIONS (1)
  - TREATMENT NONCOMPLIANCE [None]
